FAERS Safety Report 8061458-2 (Version None)
Quarter: 2012Q1

REPORT INFORMATION
  Report Type: 
  Country: None (occurrence: None)
  Receive Date: 20120120
  Receipt Date: 20111118
  Transmission Date: 20120608
  Serious: No
  Sender: FDA-Public Use
  Company Number: US-ALLERGAN-1114641US

PATIENT
  Age: 50 Year
  Sex: Female

DRUGS (1)
  1. RESTASIS [Suspect]
     Indication: PRODUCT USED FOR UNKNOWN INDICATION
     Dosage: 2 GTT, QID
     Route: 047
     Dates: start: 20110812, end: 20110822

REACTIONS (4)
  - DRY MOUTH [None]
  - PERIORBITAL OEDEMA [None]
  - SINUS DISORDER [None]
  - EYELID OEDEMA [None]
